FAERS Safety Report 9830944 (Version 1)
Quarter: 2014Q1

REPORT INFORMATION
  Report Type: Spontaneous
  Country: US (occurrence: US)
  Receive Date: 20140120
  Receipt Date: 20140120
  Transmission Date: 20141002
  Serious: Yes (Other)
  Sender: FDA-Public Use
  Company Number: US-RB-062666-14

PATIENT
  Age: 47 Year
  Sex: Female

DRUGS (3)
  1. SUBUTEX [Suspect]
     Indication: DRUG DEPENDENCE
     Dosage: AT SOME POINT WAS TAKING 48 MG DAILY; OTHERWISE DOSING DETAILS UNKNOWN
     Route: 060
  2. BUPRENORPHINE GENERIC [Suspect]
     Indication: DRUG DEPENDENCE
     Dosage: UNKNOWN DOSING DETAILS
     Route: 060
     Dates: end: 20140107
  3. BUPRENORPHINE/NALOXONE GENERIC [Suspect]
     Indication: DRUG DEPENDENCE
     Route: 060
     Dates: start: 20140108

REACTIONS (11)
  - Prescribed overdose [Recovered/Resolved]
  - Tooth disorder [Not Recovered/Not Resolved]
  - Diarrhoea [Recovered/Resolved]
  - Drug withdrawal syndrome [Not Recovered/Not Resolved]
  - Unevaluable event [Not Recovered/Not Resolved]
  - Urinary incontinence [Not Recovered/Not Resolved]
  - Dehydration [Not Recovered/Not Resolved]
  - Back injury [Recovered/Resolved]
  - Back pain [Not Recovered/Not Resolved]
  - Pneumonia [Not Recovered/Not Resolved]
  - Depression [Not Recovered/Not Resolved]
